FAERS Safety Report 9542652 (Version 2)
Quarter: 2013Q3

REPORT INFORMATION
  Report Type: Spontaneous
  Country: JP (occurrence: JP)
  Receive Date: 20130923
  Receipt Date: 20130930
  Transmission Date: 20140515
  Serious: Yes (Other)
  Sender: FDA-Public Use
  Company Number: JP-PFIZER INC-2013271430

PATIENT
  Sex: Male

DRUGS (12)
  1. CELECOX [Suspect]
     Dosage: 100 MG, 2X/DAY
     Route: 048
  2. TAKEPRON OD [Concomitant]
     Dosage: 1 DF, 1X/DAY
  3. MUCOSOLVAN-L [Concomitant]
     Dosage: 45 MG, 1X/DAY
  4. TALION [Concomitant]
     Dosage: 10 MG, 2X/DAY
  5. PREDNISOLON [Concomitant]
     Dosage: 3 TABLETS IN THE MORNING AND 2 TABLETS IN THE EVENING
  6. LAC B [Concomitant]
     Dosage: 1 DF, 2X/DAY
  7. PROGRAF [Concomitant]
     Dosage: 1 MG, 1X/DAY
  8. BACTAR TABLETS [Concomitant]
     Dosage: 1 DF, 1X/DAY
  9. ONE-ALPHA [Concomitant]
     Dosage: 1 DF, 1X/DAY
  10. LAMISIL [Concomitant]
     Dosage: UNK
     Route: 062
  11. BONALON [Concomitant]
     Dosage: AT THE TIME OF AWAKENING
  12. SIMPONI [Concomitant]
     Indication: RHEUMATOID ARTHRITIS
     Dosage: ONCE IN 4 WEEKS
     Route: 042

REACTIONS (2)
  - Fungal oesophagitis [Unknown]
  - Tooth disorder [Unknown]
